FAERS Safety Report 19451145 (Version 1)
Quarter: 2021Q2

REPORT INFORMATION
  Report Type: Spontaneous
  Country: US (occurrence: US)
  Receive Date: 20210622
  Receipt Date: 20210622
  Transmission Date: 20210717
  Serious: Yes (Hospitalization)
  Sender: FDA-Public Use
  Company Number: None

PATIENT
  Age: 88 Year
  Sex: Female
  Weight: 93 kg

DRUGS (1)
  1. CASIRIVIMAB/IMDEVIMAB [Suspect]
     Active Substance: CASIRIVIMAB\IMDEVIMAB
     Indication: COVID-19
     Dosage: ?          OTHER FREQUENCY:ONCE;?
     Route: 042
     Dates: start: 20210622, end: 20210622

REACTIONS (7)
  - Tachycardia [None]
  - Oxygen saturation decreased [None]
  - Somnolence [None]
  - Wheezing [None]
  - Pyrexia [None]
  - Nausea [None]
  - Confusional state [None]

NARRATIVE: CASE EVENT DATE: 20210622
